FAERS Safety Report 7250403-5 (Version None)
Quarter: 2011Q1

REPORT INFORMATION
  Report Type: 
  Country: None (occurrence: None)
  Receive Date: 20110128
  Receipt Date: 20110113
  Transmission Date: 20110831
  Serious: Yes (Death, Other)
  Sender: FDA-Public Use
  Company Number: ID-ROCHE-748132

PATIENT
  Age: 33 Month
  Sex: Female

DRUGS (4)
  1. ACETAMINOPHEN [Concomitant]
     Dosage: DRUG NAME ^PARACETAMOL/ACETAMINOPHEN
     Dates: start: 20090210, end: 20090217
  2. OMEPRAZOLE [Concomitant]
     Dates: start: 20090215, end: 20090216
  3. OSELTAMIVIR [Suspect]
     Indication: AVIAN INFLUENZA
     Dosage: INCOMPLETE COURSE-DEATH
     Route: 065
     Dates: start: 20090217, end: 20090217
  4. CEFOTAXIME SODIUM [Concomitant]
     Dosage: INCOMPLETE COURSE-DEATH
     Dates: start: 20090214, end: 20090217

REACTIONS (2)
  - ACUTE RESPIRATORY DISTRESS SYNDROME [None]
  - PNEUMONIA [None]
